FAERS Safety Report 4712556-X (Version None)
Quarter: 2005Q2

REPORT INFORMATION
  Report Type: 
  Country: None (occurrence: None)
  Receive Date: 20050629
  Receipt Date: 20050413
  Transmission Date: 20051028
  Serious: No
  Sender: FDA-Public Use
  Company Number: 05P-163-0297257-00

PATIENT
  Age: 51 Year
  Sex: Female
  Weight: 58.0604 kg

DRUGS (15)
  1. HUMIRA [Suspect]
     Indication: RHEUMATOID ARTHRITIS
     Dosage: 40 MG, 1 IN 1 WK, SUBCUTANEOUS
     Route: 058
     Dates: start: 20040601
  2. ACETAMINOPHEN [Concomitant]
  3. LEVOTHYROXINE SODIUM [Concomitant]
  4. DICYCLOMINE HCL [Concomitant]
  5. PANTOPRAZOLE [Concomitant]
  6. NIFEDIPINE [Concomitant]
  7. FLUOXETINE HCL [Concomitant]
  8. NADOLOL [Concomitant]
  9. FAMOTIDINE [Concomitant]
  10. FEXOFENADINE HYDROCHLORIDE [Concomitant]
  11. MUCINEX [Concomitant]
  12. TRAMADOL HCL [Concomitant]
  13. IMITREX [Concomitant]
  14. FLUCONAZOLE [Concomitant]
  15. TOPIRAMATE [Concomitant]

REACTIONS (1)
  - INJECTION SITE URTICARIA [None]
